FAERS Safety Report 13105004 (Version 1)
Quarter: 2017Q1

REPORT INFORMATION
  Report Type: Spontaneous
  Country: FR (occurrence: FR)
  Receive Date: 20170111
  Receipt Date: 20170111
  Transmission Date: 20170428
  Serious: Yes (Hospitalization)
  Sender: FDA-Public Use
  Company Number: FR-GLAXOSMITHKLINE-FR2017GSK001300

PATIENT
  Age: 79 Year
  Sex: Female

DRUGS (12)
  1. ZELITREX [Suspect]
     Active Substance: VALACYCLOVIR HYDROCHLORIDE
     Indication: ANTIVIRAL PROPHYLAXIS
     Dosage: 500 MG, 1D
     Dates: start: 20160729, end: 201612
  2. BISOPROLOL [Concomitant]
     Active Substance: BISOPROLOL
  3. BACTRIM [Suspect]
     Active Substance: SULFAMETHOXAZOLE\TRIMETHOPRIM
     Indication: OPPORTUNISTIC INFECTION PROPHYLAXIS
     Dosage: 1 DF, Z
     Dates: start: 20160729, end: 201611
  4. PANTOPRAZOLE [Concomitant]
     Active Substance: PANTOPRAZOLE SODIUM
     Dosage: UNK
     Dates: start: 201611
  5. SPECIAFOLDINE [Concomitant]
     Active Substance: FOLIC ACID
     Indication: CHRONIC MYELOID LEUKAEMIA
     Dosage: 5 MG, TID
     Dates: start: 20160729
  6. FUROSEMIDE. [Concomitant]
     Active Substance: FUROSEMIDE
  7. LEVOTHYROX [Concomitant]
     Active Substance: LEVOTHYROXINE
  8. CEFTRIAXONE. [Concomitant]
     Active Substance: CEFTRIAXONE
     Indication: ERYSIPELAS
     Dosage: UNK
     Dates: start: 20160915
  9. LERCANIDIPINE [Concomitant]
     Active Substance: LERCANIDIPINE
  10. RAMIPRIL. [Concomitant]
     Active Substance: RAMIPRIL
  11. COUMADIN [Concomitant]
     Active Substance: WARFARIN SODIUM
     Indication: ATRIAL FIBRILLATION
     Dosage: UNK
     Dates: start: 201607
  12. GLIVEC [Suspect]
     Active Substance: IMATINIB MESYLATE
     Indication: CHRONIC MYELOID LEUKAEMIA
     Dosage: 400 MG, 1D
     Route: 048
     Dates: start: 20160729, end: 20161117

REACTIONS (1)
  - Eczema [Recovered/Resolved]

NARRATIVE: CASE EVENT DATE: 201611
